FAERS Safety Report 8285899-3 (Version None)
Quarter: 2012Q2

REPORT INFORMATION
  Report Type: 
  Country: None (occurrence: None)
  Receive Date: 20120414
  Receipt Date: 20110817
  Transmission Date: 20120825
  Serious: Yes (Hospitalization)
  Sender: FDA-Public Use
  Company Number: PHHY2011AU116134

PATIENT
  Sex: Female

DRUGS (1)
  1. ZOLEDRONOC ACID [Suspect]
     Dosage: 5 MG, FIRST INFUSION
     Route: 042
     Dates: start: 20100811

REACTIONS (4)
  - OVERDOSE [None]
  - VARICOSE VEIN RUPTURED [None]
  - MIGRAINE [None]
  - DEVICE DIFFICULT TO USE [None]
